FAERS Safety Report 23405992 (Version 1)
Quarter: 2024Q1

REPORT INFORMATION
  Report Type: Spontaneous
  Country: US (occurrence: US)
  Receive Date: 20240116
  Receipt Date: 20240116
  Transmission Date: 20240410
  Serious: Yes (Other)
  Sender: FDA-Public Use
  Company Number: US-TASMAN PHARMA, INC.-2024TSM00003

PATIENT
  Age: 59 Year
  Sex: Female

DRUGS (9)
  1. CLOZAPINE [Suspect]
     Active Substance: CLOZAPINE
     Indication: Bipolar disorder
     Dosage: GRADUALLY INCREASED TO 75 MG, 1X/DAY (MORNING)
  2. CLOZAPINE [Suspect]
     Active Substance: CLOZAPINE
     Dosage: GRADUALLY INCREASED TO 125 MG, 1X/DAY (EVENING)
  3. CLOZAPINE [Suspect]
     Active Substance: CLOZAPINE
     Dosage: 25 MG, 1X/DAY (MORNING)
  4. CLOZAPINE [Suspect]
     Active Substance: CLOZAPINE
     Dosage: 50 MG, 1X/DAY (EVENING)
  5. CLOZAPINE [Suspect]
     Active Substance: CLOZAPINE
     Dosage: 75 MG, 1X/DAY (MORNING)
  6. CLOZAPINE [Suspect]
     Active Substance: CLOZAPINE
     Dosage: 125 MG, 1X/DAY (EVENING)
  7. CLOZAPINE [Suspect]
     Active Substance: CLOZAPINE
     Dosage: 50 MG, 2X/DAY
  8. LITHIUM [Suspect]
     Active Substance: LITHIUM
     Indication: Bipolar disorder
     Dosage: GRADUALLY INCREASED TO 450 MG, 1X/DAY (EVENING)
  9. LITHIUM [Suspect]
     Active Substance: LITHIUM
     Dosage: 300 MG, 1X/DAY

REACTIONS (2)
  - Drug interaction [Recovered/Resolved]
  - Myoclonus [Recovered/Resolved]
